FAERS Safety Report 25893511 (Version 2)
Quarter: 2025Q4

REPORT INFORMATION
  Report Type: Spontaneous
  Country: EU (occurrence: EU)
  Receive Date: 20251008
  Receipt Date: 20251029
  Transmission Date: 20260118
  Serious: Yes (Other)
  Sender: BAXTER
  Company Number: EU-BAXTER-2025BAX022127

PATIENT
  Age: 19 Year
  Sex: Female
  Weight: 38 kg

DRUGS (1)
  1. OLIMEL E [Suspect]
     Active Substance: AMINO ACIDS\DEXTROSE\ELECTROLYTES NOS\SOYBEAN OIL
     Indication: Parenteral nutrition
     Dosage: 1500 ML OVER 24 HRS
     Route: 065

REACTIONS (3)
  - Syncope [Recovered/Resolved]
  - Pain [Recovered/Resolved]
  - Drug intolerance [Unknown]
